FAERS Safety Report 5917363-8 (Version None)
Quarter: 2008Q4

REPORT INFORMATION
  Report Type: 
  Country: None (occurrence: None)
  Receive Date: 20081014
  Receipt Date: 20081003
  Transmission Date: 20090506
  Serious: Yes (Hospitalization)
  Sender: FDA-Public Use
  Company Number: US-WYE-H06251908

PATIENT
  Age: 7 Year
  Sex: Female

DRUGS (1)
  1. GUAIFENESIN [Suspect]
     Indication: DRUG USE FOR UNKNOWN INDICATION
     Dosage: 2 DOSES
     Route: 065

REACTIONS (4)
  - ABDOMINAL PAIN [None]
  - DIZZINESS [None]
  - DRUG SCREEN POSITIVE [None]
  - VISION BLURRED [None]
